FAERS Safety Report 26110574 (Version 1)
Quarter: 2025Q4

REPORT INFORMATION
  Report Type: Spontaneous
  Country: GB (occurrence: GB)
  Receive Date: 20251202
  Receipt Date: 20251202
  Transmission Date: 20260118
  Serious: Yes (Other)
  Sender: ALEXION PHARMACEUTICALS
  Company Number: None

PATIENT
  Age: 75 Year
  Sex: Male
  Weight: 78 kg

DRUGS (4)
  1. ESOMEPRAZOLE [Suspect]
     Active Substance: ESOMEPRAZOLE
     Route: 065
  2. NAPROXEN [Suspect]
     Active Substance: NAPROXEN
     Indication: Ill-defined disorder
     Dosage: 500 MILLIGRAM
     Route: 065
  3. Acemetacin Sandoz [Concomitant]
     Indication: Ill-defined disorder
     Route: 065
     Dates: start: 20251002, end: 20251030
  4. METOLAZONE [Concomitant]
     Active Substance: METOLAZONE
     Indication: Ill-defined disorder
     Route: 065
     Dates: start: 20250910, end: 20251008

REACTIONS (1)
  - Haemorrhage [Recovered/Resolved]
